FAERS Safety Report 23975570 (Version 2)
Quarter: 2024Q4

REPORT INFORMATION
  Report Type: Spontaneous
  Country: US (occurrence: US)
  Receive Date: 20240614
  Receipt Date: 20241018
  Transmission Date: 20250115
  Serious: Yes (Other)
  Sender: UCB
  Company Number: US-UCBSA-2024024472

PATIENT
  Sex: Female
  Weight: 70.295 kg

DRUGS (2)
  1. BIMZELX [Suspect]
     Active Substance: BIMEKIZUMAB-BKZX
     Indication: Psoriasis
     Dosage: 320 MILLIGRAM, EV 4 WEEKS FOR 16 WEEKS THEN 2 PENS EVERY 8 WEEKS THEREAFTER.
     Route: 058
     Dates: start: 202403
  2. BIMZELX [Suspect]
     Active Substance: BIMEKIZUMAB-BKZX
     Dosage: 320 MILLIGRAM, EV 8 WEEKS

REACTIONS (4)
  - Oesophageal candidiasis [Recovered/Resolved]
  - Oral candidiasis [Recovered/Resolved]
  - Constipation [Recovered/Resolved]
  - Odynophagia [Recovered/Resolved]

NARRATIVE: CASE EVENT DATE: 20240101
